FAERS Safety Report 8542501-0 (Version None)
Quarter: 2012Q3

REPORT INFORMATION
  Report Type: 
  Country: None (occurrence: None)
  Receive Date: 20120726
  Receipt Date: 20111017
  Transmission Date: 20120928
  Serious: Yes (Other)
  Sender: FDA-Public Use
  Company Number: US-ASTRAZENECA-2011SE37333

PATIENT
  Age: 45 Year
  Sex: Male
  Weight: 115.7 kg

DRUGS (14)
  1. LEXAPRO [Concomitant]
     Dosage: 20 MG ONE AND HALF
     Route: 048
     Dates: start: 20100224
  2. SEROQUEL XR [Suspect]
     Route: 048
  3. LEXAPRO [Concomitant]
     Indication: DEPRESSION
  4. PAXIL [Concomitant]
     Indication: DEPRESSION
     Route: 048
     Dates: end: 20100224
  5. SEROQUEL XR [Suspect]
     Indication: SCHIZOPHRENIA
     Route: 048
     Dates: start: 20110301
  6. SEROQUEL XR [Suspect]
     Route: 048
  7. TRAZODONE HCL [Concomitant]
  8. SEROQUEL XR [Suspect]
     Indication: BIPOLAR DISORDER
     Route: 048
     Dates: start: 20110301
  9. THC [Suspect]
     Route: 065
  10. COCAINE [Suspect]
     Route: 065
  11. KLONOPIN [Concomitant]
     Indication: ANXIETY
     Dates: start: 20091130
  12. LEXAPRO [Concomitant]
     Indication: ANXIETY
  13. LEXAPRO [Concomitant]
     Dosage: 20 MG ONE AND HALF
     Route: 048
     Dates: start: 20100224
  14. PAXIL [Concomitant]
     Indication: ANXIETY
     Route: 048
     Dates: end: 20100224

REACTIONS (5)
  - INSOMNIA [None]
  - MEMORY IMPAIRMENT [None]
  - DRUG EFFECT DECREASED [None]
  - WEIGHT INCREASED [None]
  - HYPERSOMNIA [None]
